FAERS Safety Report 5232308-4 (Version None)
Quarter: 2007Q1

REPORT INFORMATION
  Report Type: 
  Country: None (occurrence: None)
  Receive Date: 20070205
  Receipt Date: 20070122
  Transmission Date: 20070707
  Serious: Yes (Death, Other)
  Sender: FDA-Public Use
  Company Number: MC200600450

PATIENT
  Age: 37 Year
  Sex: Male

DRUGS (5)
  1. ANGIOMAX [Suspect]
     Dosage: 63.75 MG, BOLUS, IV BOLUS
     Route: 040
     Dates: start: 20060326, end: 20060326
  2. LOVENOX (HEPARIN FRACTION) [Concomitant]
  3. GARDENAL ^AVENTIS^ (PHENOBARBITAL) [Concomitant]
  4. ADRENALINE/00003901/ (EPINEPHRINE) [Concomitant]
  5. AUGMENTIN /00756801/ (AMOXICILLIN SODIUM, CLAVULANATE POTASSIUM) [Concomitant]

REACTIONS (8)
  - ARTERIOSPASM CORONARY [None]
  - CARDIOVASCULAR DISORDER [None]
  - CONVULSION [None]
  - LIFE SUPPORT [None]
  - LOSS OF CONSCIOUSNESS [None]
  - MALAISE [None]
  - NERVOUS SYSTEM DISORDER [None]
  - RESPIRATORY DISTRESS [None]
